FAERS Safety Report 5847400-0 (Version None)
Quarter: 2008Q3

REPORT INFORMATION
  Report Type: 
  Country: None (occurrence: None)
  Receive Date: 20080813
  Receipt Date: 20080805
  Transmission Date: 20090109
  Serious: Yes (Hospitalization)
  Sender: FDA-Public Use
  Company Number: GXKR2008GB07349

PATIENT
  Age: 52 Year
  Sex: Male

DRUGS (3)
  1. CODEINE PHOSPHATE (NGX) (CODEINE PHOSPHATE) UNKNOWN [Suspect]
     Indication: PAIN
     Dosage: 60 MG, QID, ORAL
     Route: 048
     Dates: start: 20080710, end: 20080710
  2. FLUOXETINE [Concomitant]
  3. PIZOTIFEN (PIZOTIFEN) [Concomitant]

REACTIONS (2)
  - MALAISE [None]
  - PARAESTHESIA [None]
